FAERS Safety Report 9498866 (Version 1)
Quarter: 2013Q3

REPORT INFORMATION
  Report Type: Spontaneous
  Country: US (occurrence: None)
  Receive Date: 20130830
  Receipt Date: 20130830
  Transmission Date: 20140515
  Serious: Yes (Hospitalization, Other)
  Sender: FDA-Public Use
  Company Number: 367308

PATIENT
  Age: 59 Year
  Sex: Male

DRUGS (3)
  1. PENTOSTATINE [Suspect]
     Indication: CHRONIC LYMPHOCYTIC LEUKAEMIA
     Dates: start: 20090825, end: 20090825
  2. CYCLOPHOSPHAMIDE [Suspect]
     Indication: CHRONIC LYMPHOCYTIC LEUKAEMIA
     Dates: start: 20090825, end: 20090825
  3. RITUXIMAB [Suspect]
     Indication: CHRONIC LYMPHOCYTIC LEUKAEMIA
     Dates: start: 20090825, end: 20090825

REACTIONS (3)
  - Dehydration [None]
  - Hypersensitivity [None]
  - Platelet count decreased [None]
